FAERS Safety Report 20179340 (Version 1)
Quarter: 2021Q4

REPORT INFORMATION
  Report Type: Spontaneous
  Country: US (occurrence: US)
  Receive Date: 20211214
  Receipt Date: 20211214
  Transmission Date: 20220303
  Serious: Yes (Other)
  Sender: FDA-Public Use
  Company Number: US-NOVARTISPH-NVSC2021US277846

PATIENT
  Age: 57 Year
  Sex: Female

DRUGS (1)
  1. COSENTYX [Suspect]
     Active Substance: SECUKINUMAB
     Indication: Product used for unknown indication
     Dosage: 300 MG, QMO (2 PEN PACK )
     Route: 058
     Dates: start: 2017, end: 20210811

REACTIONS (3)
  - Nephrolithiasis [Unknown]
  - Kidney infection [Unknown]
  - Illness [Unknown]

NARRATIVE: CASE EVENT DATE: 20210501
